FAERS Safety Report 6542763-5 (Version None)
Quarter: 2010Q1

REPORT INFORMATION
  Report Type: 
  Country: None (occurrence: None)
  Receive Date: 20100114
  Receipt Date: 20100104
  Transmission Date: 20100710
  Serious: Yes (Death)
  Sender: FDA-Public Use
  Company Number: 2010SCPR000025

PATIENT
  Age: 31 Year
  Sex: Female

DRUGS (2)
  1. TRAMADOL HCL [Suspect]
     Indication: DRUG USE FOR UNKNOWN INDICATION
     Dosage: PARENTERAL
     Route: 051
  2. FUROSEMIDE (FUROSEMIDE) UNKNOWN [Suspect]
     Indication: DRUG USE FOR UNKNOWN INDICATION
     Dosage: PARENTERAL
     Route: 051

REACTIONS (1)
  - ADVERSE DRUG REACTION [None]
